FAERS Safety Report 8911644 (Version 12)
Quarter: 2015Q2

REPORT INFORMATION
  Report Type: Report from Study
  Country: FI (occurrence: FI)
  Receive Date: 20121115
  Receipt Date: 20150515
  Transmission Date: 20150821
  Serious: Yes (Hospitalization)
  Sender: FDA-Public Use
  Company Number: FI-ROCHE-1152822

PATIENT
  Age: 52 Year
  Sex: Female

DRUGS (29)
  1. PERTUZUMAB [Suspect]
     Active Substance: PERTUZUMAB
     Indication: HER-2 POSITIVE BREAST CANCER
     Route: 042
     Dates: start: 20120802, end: 20120802
  2. PERTUZUMAB [Suspect]
     Active Substance: PERTUZUMAB
     Dosage: THERAPY RESTARTED?LAST DOSE PRIOR TO 2ND EVENT OF ERYSIPELAS LEFT ARM 24/OCT/2014
     Route: 042
     Dates: start: 20121130
  3. ZOMETA [Concomitant]
     Active Substance: ZOLEDRONIC ACID
     Route: 042
     Dates: start: 20120802
  4. ZYRTEC [Concomitant]
     Active Substance: CETIRIZINE HYDROCHLORIDE
     Indication: HYPERSENSITIVITY
     Dosage: BEFORE INFUSION
     Route: 048
     Dates: start: 20120802
  5. IMOCUR [Concomitant]
     Indication: DIARRHOEA
     Route: 065
     Dates: start: 20120802, end: 20120923
  6. NEULASTA [Concomitant]
     Active Substance: PEGFILGRASTIM
     Indication: PROPHYLAXIS
     Route: 058
     Dates: start: 20120803, end: 20121201
  7. KLEXANE [Concomitant]
     Active Substance: ENOXAPARIN
     Indication: PROPHYLAXIS
     Route: 058
     Dates: start: 20141120, end: 20141127
  8. PERTUZUMAB [Suspect]
     Active Substance: PERTUZUMAB
     Dosage: MOST RECENT DOSE PRIOR TO EVENT: 24/OCT/2012
     Route: 042
     Dates: start: 20120823, end: 20121102
  9. DOCETAXEL. [Suspect]
     Active Substance: DOCETAXEL
     Indication: HER-2 POSITIVE BREAST CANCER
     Dosage: MOST RECENT DOSE PRIOR TO SAE WAS TAKEN ON 24/OCT/2012
     Route: 042
     Dates: start: 20120802
  10. SOMAC ENTEROTAB [Concomitant]
     Route: 048
     Dates: start: 20121110, end: 20130618
  11. ZOMETA [Concomitant]
     Active Substance: ZOLEDRONIC ACID
     Route: 042
     Dates: start: 20140801
  12. PANDOL [Concomitant]
     Active Substance: HALOPERIDOL
     Indication: PROPHYLAXIS
     Route: 048
     Dates: start: 20120802
  13. TRASTUZUMAB [Suspect]
     Active Substance: TRASTUZUMAB
     Dosage: THERAPY RESTARTED?LAST DOSE PRIOR TO 2ND EVENT OF ERYSIPELAS LEFT ARM 24/OCT/2014
     Route: 042
     Dates: start: 20121130
  14. TRASTUZUMAB [Suspect]
     Active Substance: TRASTUZUMAB
     Indication: HER-2 POSITIVE BREAST CANCER
     Route: 042
     Dates: start: 20120802, end: 20120802
  15. CALCICHEW D3 [Concomitant]
     Active Substance: CALCIUM\CHOLECALCIFEROL
     Indication: METASTASES TO BONE
     Dosage: 1000MG/20 MICROGRAM
     Route: 065
     Dates: start: 20120801
  16. SOMAC ENTEROTAB [Concomitant]
     Route: 048
     Dates: start: 20131119
  17. DEXAMETHASON [Concomitant]
     Active Substance: DEXAMETHASONE
     Indication: NAUSEA
     Route: 065
     Dates: start: 20120801, end: 20121202
  18. DEXAMETHASON [Concomitant]
     Active Substance: DEXAMETHASONE
     Indication: HYPERSENSITIVITY
  19. FURESIS [Concomitant]
     Active Substance: FUROSEMIDE
     Route: 042
     Dates: start: 20141119, end: 20141122
  20. ATROVENT [Concomitant]
     Active Substance: IPRATROPIUM BROMIDE
     Route: 065
     Dates: start: 20141119
  21. TRASTUZUMAB [Suspect]
     Active Substance: TRASTUZUMAB
     Dosage: MOST RECENT DOSE PRIOR TO EVENT: 24/OCT/2012
     Route: 042
     Dates: start: 20120823, end: 20121102
  22. TRASTUZUMAB [Suspect]
     Active Substance: TRASTUZUMAB
     Dosage: LAST DOSE PRIOR TO SECOND OCCURENCE OF PNEUMONIA 14/NOV/2014?MAINTENANCE DOSE PER PROTOCOL 6MG/KG
     Route: 042
  23. DOCETAXEL. [Suspect]
     Active Substance: DOCETAXEL
     Dosage: DOSE REDUCED
     Route: 042
     Dates: start: 20121130
  24. PERTUZUMAB [Suspect]
     Active Substance: PERTUZUMAB
     Dosage: LAST DOSE PRIOR TO SECOND OCCURENCE OF PNEUMONIA 14/NOV/2014
     Route: 042
  25. ZOMETA [Concomitant]
     Active Substance: ZOLEDRONIC ACID
     Indication: METASTASES TO BONE
     Route: 042
     Dates: start: 20120802, end: 20140801
  26. BURANA [Concomitant]
     Active Substance: IBUPROFEN
     Indication: PAIN
     Dosage: 1200-1800 MG AS TOTAL DAILY DOSE
     Route: 065
     Dates: start: 20120713, end: 20130214
  27. SOMAC ENTEROTAB [Concomitant]
     Indication: PROPHYLAXIS
     Route: 065
     Dates: start: 20120801, end: 20130618
  28. ZOVIRAX [Concomitant]
     Active Substance: ACYCLOVIR
     Dosage: 5%X5/DAY
     Route: 065
     Dates: start: 20141101
  29. KALEORID [Concomitant]
     Active Substance: POTASSIUM CHLORIDE
     Indication: PROPHYLAXIS
     Route: 065

REACTIONS (4)
  - Pneumonia [Recovered/Resolved]
  - Erysipelas [Recovered/Resolved]
  - Pneumonia [Recovered/Resolved]
  - Erysipelas [Recovered/Resolved]

NARRATIVE: CASE EVENT DATE: 20121102
